FAERS Safety Report 20874509 (Version 2)
Quarter: 2022Q2

REPORT INFORMATION
  Report Type: Spontaneous
  Country: JP (occurrence: JP)
  Receive Date: 20220525
  Receipt Date: 20220613
  Transmission Date: 20220720
  Serious: Yes (Other)
  Sender: FDA-Public Use
  Company Number: JP-JAZZ-2022-JP-016430

PATIENT
  Age: 11 Year
  Sex: Male
  Weight: 44.5 kg

DRUGS (7)
  1. DEFITELIO [Suspect]
     Active Substance: DEFIBROTIDE SODIUM
     Indication: Venoocclusive liver disease
     Dosage: 6.2 MILLIGRAM/KILOGRAM, QD
     Route: 042
     Dates: start: 20210326, end: 20210326
  2. DEFITELIO [Suspect]
     Active Substance: DEFIBROTIDE SODIUM
     Dosage: 25 MILLIGRAM/KILOGRAM, QD
     Route: 042
     Dates: start: 20210327, end: 20210418
  3. DEFITELIO [Suspect]
     Active Substance: DEFIBROTIDE SODIUM
     Dosage: 18.6 MILLIGRAM/KILOGRAM, QD
     Route: 042
     Dates: start: 20210419, end: 20210419
  4. DEFITELIO [Suspect]
     Active Substance: DEFIBROTIDE SODIUM
     Dosage: 12.4 MILLIGRAM/KILOGRAM, QD
     Route: 042
     Dates: start: 20210421, end: 20210421
  5. DEFITELIO [Suspect]
     Active Substance: DEFIBROTIDE SODIUM
     Dosage: 25 MILLIGRAM/KILOGRAM, QD
     Route: 042
     Dates: start: 20210422, end: 20210422
  6. DEFITELIO [Suspect]
     Active Substance: DEFIBROTIDE SODIUM
     Dosage: 12.4 MILLIGRAM/KILOGRAM, QD
     Route: 042
     Dates: start: 20210423, end: 20210423
  7. THROMBOMODULIN ALFA [Concomitant]
     Active Substance: THROMBOMODULIN ALFA
     Indication: Product used for unknown indication
     Dosage: UNK
     Dates: start: 20210326, end: 20210419

REACTIONS (2)
  - Mucosal haemorrhage [Recovered/Resolved]
  - Platelet count decreased [Unknown]

NARRATIVE: CASE EVENT DATE: 20210101
